FAERS Safety Report 18739861 (Version 1)
Quarter: 2021Q1

REPORT INFORMATION
  Report Type: Spontaneous
  Country: US (occurrence: US)
  Receive Date: 20210113
  Receipt Date: 20210113
  Transmission Date: 20210419
  Serious: Yes (Hospitalization)
  Sender: FDA-Public Use
  Company Number: None

PATIENT
  Age: 51 Year
  Sex: Male

DRUGS (7)
  1. ONDANSETRON TAB 8MG [Concomitant]
     Active Substance: ONDANSETRON
  2. SIMVASTATIN TAB 20MG [Concomitant]
  3. ALLOPURINOL TAB 100MG [Concomitant]
  4. HYDROCHLOROT TAB 25MG [Concomitant]
  5. METFORMIN [Concomitant]
     Active Substance: METFORMIN HYDROCHLORIDE
  6. HUMIRA [Suspect]
     Active Substance: ADALIMUMAB
     Indication: PSORIASIS
     Route: 058
     Dates: start: 20190509
  7. LOSARTAN POT TAB 100MG [Concomitant]

REACTIONS (7)
  - Hypophagia [None]
  - Sleep disorder [None]
  - Dehydration [None]
  - Pancreatitis [None]
  - Renal disorder [None]
  - Nausea [None]
  - Cholelithiasis [None]

NARRATIVE: CASE EVENT DATE: 20210103
